FAERS Safety Report 15656578 (Version 2)
Quarter: 2018Q4

REPORT INFORMATION
  Report Type: Spontaneous
  Country: JP (occurrence: JP)
  Receive Date: 20181126
  Receipt Date: 20181220
  Transmission Date: 20190205
  Serious: Yes (Death, Hospitalization, Other)
  Sender: FDA-Public Use
  Company Number: JP-DSJP-DSJ-2018-148734

PATIENT

DRUGS (4)
  1. WARFARIN                           /00014803/ [Suspect]
     Active Substance: WARFARIN
     Dosage: UNK
     Route: 065
  2. OLMETEC OD [Suspect]
     Active Substance: OLMESARTAN MEDOXOMIL
     Indication: PRODUCT USED FOR UNKNOWN INDICATION
     Dosage: UNK
     Route: 065
  3. ARTIST [Suspect]
     Active Substance: CARVEDILOL
     Indication: PRODUCT USED FOR UNKNOWN INDICATION
     Dosage: UNK
     Route: 065
  4. FUROSEMIDE. [Suspect]
     Active Substance: FUROSEMIDE
     Dosage: UNK
     Route: 065

REACTIONS (9)
  - International normalised ratio increased [Unknown]
  - Blood creatinine increased [Unknown]
  - Pneumonia [Fatal]
  - Haemoglobin decreased [Unknown]
  - Dyspnoea [Unknown]
  - Chest pain [Unknown]
  - Cardio-respiratory arrest [Recovered/Resolved]
  - Extravasation [Recovered/Resolved]
  - Retroperitoneal haematoma [Unknown]
